FAERS Safety Report 5521951-0 (Version None)
Quarter: 2007Q4

REPORT INFORMATION
  Report Type: 
  Country: None (occurrence: None)
  Receive Date: 20071120
  Receipt Date: 20070423
  Transmission Date: 20080405
  Serious: No
  Sender: FDA-Public Use
  Company Number: US-BRISTOL-MYERS SQUIBB COMPANY-13756671

PATIENT
  Sex: Female
  Weight: 91 kg

DRUGS (6)
  1. AVAPRO-HCT TABS 300 MG/12.5 MG [Suspect]
  2. PLAVIX [Concomitant]
     Route: 048
  3. LIPITOR [Concomitant]
     Route: 048
  4. ZYRTEC [Concomitant]
     Route: 048
  5. TOPROL-XL [Concomitant]
     Route: 048
  6. EFFEXOR [Concomitant]
     Route: 048

REACTIONS (2)
  - DIZZINESS [None]
  - FATIGUE [None]
